FAERS Safety Report 6527769-4 (Version None)
Quarter: 2009Q4

REPORT INFORMATION
  Report Type: 
  Country: None (occurrence: None)
  Receive Date: 20091231
  Receipt Date: 20091218
  Transmission Date: 20100525
  Serious: Yes (Other)
  Sender: FDA-Public Use
  Company Number: ACO_00629_2009

PATIENT
  Sex: Male

DRUGS (2)
  1. TIZANIDINE HYDROCHLORIDE [Suspect]
     Indication: MUSCLE SPASMS
     Dosage: (4 MG 1X)
     Dates: start: 20091214, end: 20091214
  2. FLUVOXAMINE MALEATE [Suspect]
     Indication: ANXIETY DISORDER
     Dosage: (100 MG QD)
     Dates: start: 20091127, end: 20091214

REACTIONS (5)
  - BLOOD PRESSURE DECREASED [None]
  - DIZZINESS [None]
  - DRUG INTERACTION [None]
  - HEARING IMPAIRED [None]
  - VISUAL FIELD DEFECT [None]
